FAERS Safety Report 8457320 (Version 2)
Quarter: 2013Q1

REPORT INFORMATION
  Report Type: Spontaneous
  Country: US (occurrence: US)
  Receive Date: 20120314
  Receipt Date: 20130312
  Transmission Date: 20140127
  Serious: Yes (Hospitalization, Other)
  Sender: FDA-Public Use
  Company Number: US-AMGEN-USASP2012015496

PATIENT
  Age: 44 Year
  Sex: Female

DRUGS (11)
  1. NEUPOGEN [Suspect]
     Indication: PRODUCT USED FOR UNKNOWN INDICATION
     Dosage: 341.5 MUG, UNK
     Dates: start: 20111009, end: 20111016
  2. MELPHALAN [Suspect]
     Indication: BONE MARROW CONDITIONING REGIMEN
     Dosage: 169 MG, QD
     Route: 042
     Dates: start: 20111001, end: 20111002
  3. CEFTAZIDIME [Concomitant]
     Indication: PYREXIA
     Dosage: UNK
  4. CEFTAZIDIME [Concomitant]
     Indication: NEUTROPENIA
  5. VANCOMYCIN [Concomitant]
     Indication: PYREXIA
     Dosage: UNK
  6. VANCOMYCIN [Concomitant]
     Indication: NEUTROPENIA
  7. FLAGYL /00012501/ [Concomitant]
     Indication: PYREXIA
     Dosage: UNK
  8. FLAGYL /00012501/ [Concomitant]
     Indication: NEUTROPENIA
  9. AUGMENTIN                          /00756801/ [Concomitant]
     Indication: PNEUMONIA
     Dosage: UNK
  10. LASIX                              /00032601/ [Concomitant]
     Indication: FLUID OVERLOAD
     Dosage: UNK
  11. LOMOTIL [Concomitant]
     Indication: DIARRHOEA
     Dosage: UNK

REACTIONS (2)
  - Febrile neutropenia [Unknown]
  - International normalised ratio increased [Recovered/Resolved]
